FAERS Safety Report 4850520-0 (Version None)
Quarter: 2005Q4

REPORT INFORMATION
  Report Type: 
  Country: None (occurrence: None)
  Receive Date: 20051212
  Receipt Date: 20051208
  Transmission Date: 20060501
  Serious: Yes (Hospitalization)
  Sender: FDA-Public Use
  Company Number: US-RB-2442-2005

PATIENT
  Sex: Female

DRUGS (3)
  1. SUBOXONE [Suspect]
     Indication: DRUG DEPENDENCE
     Route: 060
     Dates: start: 20051126, end: 20051128
  2. SUBOXONE [Suspect]
     Route: 060
     Dates: start: 20051129, end: 20051206
  3. AMITRIPTYLINE HCL [Concomitant]
     Indication: DEPRESSION
     Route: 048

REACTIONS (2)
  - CONFUSIONAL STATE [None]
  - HALLUCINATION [None]
